FAERS Safety Report 5547231-5 (Version None)
Quarter: 2007Q4

REPORT INFORMATION
  Report Type: 
  Country: None (occurrence: None)
  Receive Date: 20071211
  Receipt Date: 20071204
  Transmission Date: 20080405
  Serious: Yes (Hospitalization)
  Sender: FDA-Public Use
  Company Number: A0697293A

PATIENT
  Age: 64 Year
  Sex: Female

DRUGS (2)
  1. AVANDIA [Suspect]
     Indication: TYPE 2 DIABETES MELLITUS
     Route: 048
     Dates: end: 20070801
  2. BLOOD PRESSURE MEDICATION [Concomitant]

REACTIONS (5)
  - HAEMATOLOGICAL MALIGNANCY [None]
  - NEOPLASM MALIGNANT [None]
  - OSTEOPOROSIS [None]
  - PAIN [None]
  - WEIGHT DECREASED [None]
